FAERS Safety Report 10234999 (Version 1)
Quarter: 2014Q1

REPORT INFORMATION
  Report Type: Spontaneous
  Country: US (occurrence: None)
  Receive Date: 20140306
  Receipt Date: 20140306
  Transmission Date: 20141002
  Serious: Yes (Other)
  Sender: FDA-Public Use
  Company Number: 163-21880-13093039

PATIENT
  Age: 67 Year
  Sex: Male
  Weight: 76.2 kg

DRUGS (10)
  1. SODIUM CHLORIDE [Concomitant]
  2. REVLIMID (LENALIDOMIDE) (10 MILLIGRAM, CAPSULES) [Suspect]
     Indication: MYELODYSPLASTIC SYNDROME
     Route: 048
     Dates: start: 20130823, end: 20130829
  3. ARANESP [Concomitant]
  4. COMBIVENT [Concomitant]
  5. EXCEDRIN [Concomitant]
  6. FLOVENT [Concomitant]
  7. FOLIC ACID [Concomitant]
  8. VITAMIN B12 [Concomitant]
  9. TYLENOL EXTRA STRENGTH [Concomitant]
  10. VITAMIN B6 [Concomitant]

REACTIONS (3)
  - Hypersensitivity [None]
  - Periorbital oedema [None]
  - Face oedema [None]
